FAERS Safety Report 10236995 (Version 1)
Quarter: 2014Q2

REPORT INFORMATION
  Report Type: Spontaneous
  Country: BR (occurrence: BR)
  Receive Date: 20140613
  Receipt Date: 20140613
  Transmission Date: 20141212
  Serious: Yes (Other)
  Sender: FDA-Public Use
  Company Number: BR-ABBVIE-14P-020-1247699-00

PATIENT
  Sex: Female
  Weight: 67 kg

DRUGS (2)
  1. SYNTHROID [Suspect]
     Indication: HYPOTHYROIDISM
     Dosage: IN THE MORNING, AFTER FASTING: DAILY DOSE: 125MG
     Route: 048
     Dates: start: 1994
  2. SYNTHROID [Suspect]

REACTIONS (2)
  - Thyroidectomy [Unknown]
  - Emotional distress [Unknown]
